FAERS Safety Report 7709330-9 (Version None)
Quarter: 2011Q3

REPORT INFORMATION
  Report Type: 
  Country: None (occurrence: None)
  Receive Date: 20110825
  Receipt Date: 20110824
  Transmission Date: 20111222
  Serious: Yes (Hospitalization)
  Sender: FDA-Public Use
  Company Number: US-VERTEX PHARMACEUTICALS INC.-AE-2011-000931

PATIENT
  Sex: Female

DRUGS (3)
  1. INCIVEK [Suspect]
     Indication: HEPATITIS C
     Dates: start: 20110801
  2. PEGINTERFRON [Concomitant]
     Indication: HEPATITIS C
     Dates: start: 20110801
  3. RIBAVIRIN [Concomitant]
     Indication: HEPATITIS C
     Dates: start: 20110801

REACTIONS (3)
  - FATIGUE [None]
  - RASH [None]
  - INFLUENZA LIKE ILLNESS [None]
